FAERS Safety Report 8068024-3 (Version None)
Quarter: 2012Q1

REPORT INFORMATION
  Report Type: 
  Country: None (occurrence: None)
  Receive Date: 20120124
  Receipt Date: 20110912
  Transmission Date: 20120608
  Serious: No
  Sender: FDA-Public Use
  Company Number: US-AMGEN-USASP2011046559

PATIENT
  Age: 73 Year
  Sex: Female

DRUGS (4)
  1. PROLIA [Suspect]
     Indication: OSTEOPOROSIS POSTMENOPAUSAL
     Dosage: 60 MG, Q6MO
  2. OSCAL                              /00514701/ [Concomitant]
     Dosage: 1 UNK, UNK
  3. SYNTHROID [Concomitant]
  4. ARICEPT [Concomitant]

REACTIONS (1)
  - FALL [None]
